FAERS Safety Report 21402168 (Version 2)
Quarter: 2022Q4

REPORT INFORMATION
  Report Type: Spontaneous
  Country: US (occurrence: US)
  Receive Date: 20221003
  Receipt Date: 20221003
  Transmission Date: 20230112
  Serious: No
  Sender: FDA-Public Use
  Company Number: US-TAKEDA-2022TUS065738

PATIENT
  Age: 16 Year
  Sex: Female

DRUGS (3)
  1. LEUPROLIDE ACETATE [Suspect]
     Active Substance: LEUPROLIDE ACETATE
     Indication: Hyperandrogenism
     Dosage: 11.25 MILLIGRAM, Q4WEEKS
     Route: 030
  2. MEDROXYPROGESTERONE [Concomitant]
     Active Substance: MEDROXYPROGESTERONE
     Indication: Withdrawal bleed
     Dosage: UNK
     Route: 065
  3. METFORMIN [Suspect]
     Active Substance: METFORMIN HYDROCHLORIDE
     Indication: Polycystic ovaries
     Route: 065

REACTIONS (3)
  - Off label use [Unknown]
  - Treatment noncompliance [Unknown]
  - Hot flush [Unknown]
